FAERS Safety Report 5253909-3 (Version None)
Quarter: 2007Q1

REPORT INFORMATION
  Report Type: 
  Country: None (occurrence: None)
  Receive Date: 20070228
  Receipt Date: 20070228
  Transmission Date: 20070707
  Serious: Yes (Life-Threatening, Hospitalization, Other)
  Sender: FDA-Public Use
  Company Number: None

PATIENT
  Age: 41 Year
  Sex: Male
  Weight: 124.7392 kg

DRUGS (3)
  1. CYMBALTA [Suspect]
     Indication: DEPRESSION
     Dosage: 30MG DAILY FOR 1 WK MOUTH
     Route: 048
  2. CYMBALTA [Suspect]
     Indication: ARTHRITIS
     Dosage: 60MG DAILY 5DAYS MOUTH
     Route: 048
  3. CYMBALTA [Suspect]
     Indication: PAIN
     Dosage: 60MG DAILY 5DAYS MOUTH
     Route: 048

REACTIONS (2)
  - OVERDOSE [None]
  - SUICIDE ATTEMPT [None]
